FAERS Safety Report 11615867 (Version 1)
Quarter: 2015Q4

REPORT INFORMATION
  Report Type: Spontaneous
  Country: US (occurrence: None)
  Receive Date: 20151008
  Receipt Date: 20151008
  Transmission Date: 20160304
  Serious: No
  Sender: FDA-Public Use
  Company Number: None

PATIENT
  Sex: Female

DRUGS (5)
  1. CLONIDINE. [Concomitant]
     Active Substance: CLONIDINE
  2. SYNTHROID [Concomitant]
     Active Substance: LEVOTHYROXINE SODIUM
  3. HYZAAR [Concomitant]
     Active Substance: HYDROCHLOROTHIAZIDE\LOSARTAN POTASSIUM
  4. BABY ASPIRIN [Concomitant]
     Active Substance: ASPIRIN
  5. MEGESTROL ACET [Suspect]
     Active Substance: MEGESTROL ACETATE
     Indication: WEIGHT INCREASED
     Route: 048
     Dates: start: 20150904

REACTIONS (1)
  - Breast pain [None]
